FAERS Safety Report 7152718-8 (Version None)
Quarter: 2010Q4

REPORT INFORMATION
  Report Type: 
  Country: None (occurrence: None)
  Receive Date: 20101208
  Receipt Date: 20101208
  Transmission Date: 20110411
  Serious: Yes (Hospitalization)
  Sender: FDA-Public Use
  Company Number: None

PATIENT
  Sex: Female
  Weight: 85.2 kg

DRUGS (2)
  1. CISPLATIN [Suspect]
     Dosage: 157 MG
  2. ETOPOSIDE [Suspect]
     Dosage: 591 MG

REACTIONS (11)
  - DEHYDRATION [None]
  - DIZZINESS [None]
  - DYSPHAGIA [None]
  - FEBRILE NEUTROPENIA [None]
  - GASTROINTESTINAL HAEMORRHAGE [None]
  - NAUSEA [None]
  - NEUTROPHIL COUNT DECREASED [None]
  - OESOPHAGEAL ULCER [None]
  - OESOPHAGITIS [None]
  - URINE OUTPUT DECREASED [None]
  - VOMITING [None]
